FAERS Safety Report 20173645 (Version 3)
Quarter: 2022Q1

REPORT INFORMATION
  Report Type: Spontaneous
  Country: US (occurrence: US)
  Receive Date: 20211212
  Receipt Date: 20220117
  Transmission Date: 20220423
  Serious: No
  Sender: FDA-Public Use
  Company Number: US-GLAXOSMITHKLINE-US2021AMR250136

PATIENT
  Sex: Female

DRUGS (3)
  1. ZEJULA [Suspect]
     Active Substance: NIRAPARIB
     Indication: Ovarian cancer
     Dosage: 100 MG, QD
     Route: 048
     Dates: start: 201803
  2. ZEJULA [Suspect]
     Active Substance: NIRAPARIB
     Dosage: 2 DF
  3. ZEJULA [Suspect]
     Active Substance: NIRAPARIB
     Dosage: 100 MG, QD
     Route: 048
     Dates: start: 20211125

REACTIONS (12)
  - Nausea [Recovered/Resolved]
  - Vomiting [Unknown]
  - Headache [Recovering/Resolving]
  - Dehydration [Recovering/Resolving]
  - Pain [Unknown]
  - Pain in extremity [Unknown]
  - Asthenia [Unknown]
  - Cyanopsia [Unknown]
  - Gait disturbance [Unknown]
  - Laboratory test abnormal [Unknown]
  - Illness [Recovering/Resolving]
  - Constipation [Recovering/Resolving]
